FAERS Safety Report 10453065 (Version 2)
Quarter: 2014Q3

REPORT INFORMATION
  Report Type: Report from Study
  Country: US (occurrence: US)
  Receive Date: 20140915
  Receipt Date: 20140915
  Transmission Date: 20150326
  Serious: Yes (Other)
  Sender: FDA-Public Use
  Company Number: US-BAYER-2014-131377

PATIENT
  Age: 67 Year
  Sex: Male

DRUGS (1)
  1. NEXAVAR [Suspect]
     Active Substance: SORAFENIB
     Indication: HEPATOCELLULAR CARCINOMA
     Dosage: 200 MG, QOD
     Route: 048
     Dates: start: 201408, end: 20140904

REACTIONS (11)
  - Limb discomfort [None]
  - Arthralgia [None]
  - Fatigue [None]
  - Nausea [None]
  - Hepatic pain [None]
  - Melaena [None]
  - Chest pain [None]
  - Dysuria [None]
  - Memory impairment [None]
  - Haematemesis [None]
  - Dyspnoea [None]

NARRATIVE: CASE EVENT DATE: 20140826
